FAERS Safety Report 6240425-5 (Version None)
Quarter: 2009Q2

REPORT INFORMATION
  Report Type: 
  Country: None (occurrence: None)
  Receive Date: 20090623
  Receipt Date: 20090619
  Transmission Date: 20091009
  Serious: No
  Sender: FDA-Public Use
  Company Number: US-B.I. PHARMACEUTICALS,INC./RIDGEFIELD-2009-BP-07543BP

PATIENT
  Age: 62 Year
  Sex: Male

DRUGS (4)
  1. FLOMAX [Suspect]
     Indication: BENIGN PROSTATIC HYPERPLASIA
     Dosage: 0.4 MG
     Route: 048
     Dates: start: 20081201, end: 20090501
  2. NITROGLYCERIN [Concomitant]
     Indication: CHEST PAIN
  3. VICODIN [Concomitant]
     Indication: INTERVERTEBRAL DISC DISORDER
  4. KLONOPIN [Concomitant]
     Indication: POST-TRAUMATIC STRESS DISORDER

REACTIONS (1)
  - SEMEN VOLUME DECREASED [None]
